FAERS Safety Report 5217943-1 (Version None)
Quarter: 2007Q1

REPORT INFORMATION
  Report Type: 
  Country: None (occurrence: None)
  Receive Date: 20061130
  Receipt Date: 20060705
  Transmission Date: 20070707
  Serious: Yes (Other)
  Sender: FDA-Public Use
  Company Number: US200607000534

PATIENT
  Age: 48 Year
  Sex: Female

DRUGS (3)
  1. OLANZAPINE [Suspect]
     Indication: BIPOLAR I DISORDER
     Dosage: 30 MG, 2/D, ORAL
     Route: 048
     Dates: start: 20030101
  2. DEPAKOTE [Concomitant]
  3. LORAZEPAM [Concomitant]

REACTIONS (7)
  - DYSKINESIA [None]
  - MUSCULAR WEAKNESS [None]
  - MUSCULOSKELETAL STIFFNESS [None]
  - PRESCRIBED OVERDOSE [None]
  - RESTLESSNESS [None]
  - TREMOR [None]
  - WEIGHT INCREASED [None]
